FAERS Safety Report 6400441-7 (Version None)
Quarter: 2009Q4

REPORT INFORMATION
  Report Type: 
  Country: None (occurrence: None)
  Receive Date: 20091007
  Receipt Date: 20091007
  Transmission Date: 20100525
  Serious: Yes (Hospitalization)
  Sender: FDA-Public Use
  Company Number: None

PATIENT
  Age: 31 Year
  Sex: Female
  Weight: 90.2658 kg

DRUGS (1)
  1. DEXAMETHASONE TABS 4 MG [Suspect]
     Indication: BACK PAIN
     Dosage: 4 MG
     Dates: start: 20090917, end: 20091001

REACTIONS (1)
  - PANCREATITIS [None]
